FAERS Safety Report 17072244 (Version 1)
Quarter: 2019Q4

REPORT INFORMATION
  Report Type: Spontaneous
  Country: CN (occurrence: CN)
  Receive Date: 20191125
  Receipt Date: 20191125
  Transmission Date: 20200122
  Serious: Yes (Other)
  Sender: FDA-Public Use
  Company Number: CN-AMNEAL PHARMACEUTICALS-2019-AMRX-02838

PATIENT
  Age: 24 Year
  Sex: Female

DRUGS (2)
  1. DIVALPROEX SODIUM ER [Suspect]
     Active Substance: DIVALPROEX SODIUM
     Indication: GENERALISED TONIC-CLONIC SEIZURE
     Dosage: 500 MILLIGRAM, EVERY 12HR
     Route: 048
  2. CLONAZEPAM. [Interacting]
     Active Substance: CLONAZEPAM
     Indication: GENERALISED TONIC-CLONIC SEIZURE
     Dosage: 2 MILLIGRAM, EVERY 12HR
     Route: 048

REACTIONS (3)
  - Sedation [Not Recovered/Not Resolved]
  - Myopathy toxic [Not Recovered/Not Resolved]
  - Drug interaction [Unknown]
